FAERS Safety Report 6370706-6 (Version None)
Quarter: 2009Q3

REPORT INFORMATION
  Report Type: 
  Country: None (occurrence: None)
  Receive Date: 20090923
  Receipt Date: 20070507
  Transmission Date: 20100115
  Serious: Yes (Other)
  Sender: FDA-Public Use
  Company Number: US-ASTRAZENECA-2006UW25285

PATIENT
  Age: 15520 Day
  Sex: Male
  Weight: 132.7 kg

DRUGS (39)
  1. SEROQUEL [Suspect]
     Indication: SCHIZOAFFECTIVE DISORDER
     Dosage: 100MG -  800MG
     Route: 048
     Dates: start: 20010730
  2. ABILIFY [Concomitant]
  3. GEODON [Concomitant]
  4. HALDOL [Concomitant]
  5. ZYPREXA [Concomitant]
     Dosage: 5 MG - 20 MG
     Route: 048
  6. WELLBUTRIN [Concomitant]
     Dosage: 50MG - 300MG
     Route: 048
  7. ESKALITH CR [Concomitant]
     Dosage: 450MG-900MG
     Route: 048
  8. TOPAMAX [Concomitant]
     Dosage: 25MG-100MG
  9. VASOTEC [Concomitant]
     Indication: HYPERTENSION
     Dosage: 2.5MG-20MG
  10. PRILOSEC [Concomitant]
     Dosage: 20MG-40MG
  11. AMBIEN [Concomitant]
     Indication: INSOMNIA
     Dosage: 5MG-12.5MG
     Route: 048
  12. PREVACID [Concomitant]
     Route: 048
  13. INDERAL [Concomitant]
  14. ASPIRIN [Concomitant]
     Route: 048
  15. ZOCOR [Concomitant]
     Dosage: 40MG-80MG
  16. PROTONIX [Concomitant]
  17. FLOMAX [Concomitant]
  18. PAXIL [Concomitant]
     Dosage: 20MG-60MG
  19. SYNTHROID [Concomitant]
     Dosage: 25MCG-50MCG
  20. LISINOPRIL [Concomitant]
     Dosage: 2.5MG-10MG
  21. NITROGLYCERIN [Concomitant]
     Dosage: 0.3MG-0.4MG
  22. MORPHINE [Concomitant]
  23. PHENERGAN [Concomitant]
     Route: 042
  24. TENORMIN [Concomitant]
  25. ADVICOR [Concomitant]
     Dosage: 500MG / 20 MG TO 1000MG / 40MG
  26. XANAX [Concomitant]
     Dosage: 1MG-3MG
  27. DEPAKOTE [Concomitant]
     Dosage: 250MG-2000MG
     Route: 048
  28. TRAZODONE [Concomitant]
     Dosage: 50MG-300MG
     Route: 048
  29. PLAVIX [Concomitant]
  30. AVANDIA [Concomitant]
     Dosage: 2MG-8MG
  31. DIOVAN [Concomitant]
  32. ISOSORBIDE [Concomitant]
     Dosage: 30MG-60MG.  DAILY
  33. CRESTOR [Concomitant]
     Dosage: 5MG-10MG
  34. CARDURA [Concomitant]
     Dosage: 2MG-8MG
  35. ATIVAN [Concomitant]
     Dosage: 0.5MG-3MG
  36. EPTIFIBATIDE [Concomitant]
     Dosage: 2MG-5MG
  37. AVODART [Concomitant]
  38. SALBUTAMOL [Concomitant]
  39. RISPERDAL [Concomitant]
     Dosage: 1MG-4MG

REACTIONS (2)
  - DIABETES MELLITUS [None]
  - PANCREATITIS [None]
